FAERS Safety Report 5982574-2 (Version None)
Quarter: 2008Q4

REPORT INFORMATION
  Report Type: 
  Country: None (occurrence: None)
  Receive Date: 20081208
  Receipt Date: 20081127
  Transmission Date: 20090506
  Serious: Yes (Hospitalization, Other)
  Sender: FDA-Public Use
  Company Number: PHHY2008MX11173

PATIENT
  Sex: Male

DRUGS (4)
  1. DIOVAN [Suspect]
     Indication: HYPERTENSION
     Dosage: 160 MG, UNK
     Route: 048
     Dates: start: 20050601
  2. DIOVAN [Suspect]
     Dosage: 80 MG, UNK
     Route: 048
  3. DIOVAN HCT [Suspect]
     Indication: HYPERTENSION
     Dosage: 80/12.5 MG
     Route: 048
  4. DIOVAN HCT [Suspect]
     Dosage: 160/12.5 MG
     Route: 048

REACTIONS (6)
  - DIALYSIS [None]
  - HERNIA [None]
  - HERNIA REPAIR [None]
  - HYPERTENSIVE CRISIS [None]
  - INFLAMMATION [None]
  - RENAL FAILURE [None]
